FAERS Safety Report 18451837 (Version 1)
Quarter: 2020Q4

REPORT INFORMATION
  Report Type: Spontaneous
  Country: US (occurrence: US)
  Receive Date: 20201030
  Receipt Date: 20201030
  Transmission Date: 20210114
  Serious: Yes (Hospitalization)
  Sender: FDA-Public Use
  Company Number: None

PATIENT
  Age: 66 Year
  Sex: Male

DRUGS (14)
  1. XARELTO [Concomitant]
     Active Substance: RIVAROXABAN
  2. CARVEDILOL. [Concomitant]
     Active Substance: CARVEDILOL
  3. CLOPIDOGREL [Concomitant]
     Active Substance: CLOPIDOGREL BISULFATE
  4. DILTAZEM [Concomitant]
  5. LANTUS SOLOS [Concomitant]
  6. FETZIMA [Concomitant]
     Active Substance: LEVOMILNACIPRAN HYDROCHLORIDE
  7. ELIQUIS [Concomitant]
     Active Substance: APIXABAN
  8. ACCU CHECK [Concomitant]
  9. AMIODARONE [Concomitant]
     Active Substance: AMIODARONE
  10. TAMSULOSIN [Concomitant]
     Active Substance: TAMSULOSIN
  11. FASTCLIX [Concomitant]
  12. REPATHA [Suspect]
     Active Substance: EVOLOCUMAB
     Indication: HYPERLIPIDAEMIA
     Dosage: OTHER FREQUENCY:TWICE MONTHLY;?
     Route: 058
     Dates: start: 20200506
  13. JARDIANCE [Concomitant]
     Active Substance: EMPAGLIFLOZIN
  14. TRULICITY [Concomitant]
     Active Substance: DULAGLUTIDE

REACTIONS (1)
  - Spinal operation [None]

NARRATIVE: CASE EVENT DATE: 20201028
